FAERS Safety Report 20679462 (Version 1)
Quarter: 2022Q2

REPORT INFORMATION
  Report Type: Spontaneous
  Country: US (occurrence: US)
  Receive Date: 20220406
  Receipt Date: 20220406
  Transmission Date: 20220721
  Serious: No
  Sender: FDA-Public Use
  Company Number: US-TEVA-2022-US-2017892

PATIENT
  Age: 71 Year
  Sex: Female

DRUGS (1)
  1. PERMETHRIN [Suspect]
     Active Substance: PERMETHRIN
     Indication: Acarodermatitis
     Route: 061
     Dates: start: 20220310, end: 20220310

REACTIONS (2)
  - Application site pain [Unknown]
  - Scab [Recovered/Resolved with Sequelae]

NARRATIVE: CASE EVENT DATE: 20220310
